FAERS Safety Report 17558071 (Version 2)
Quarter: 2020Q1

REPORT INFORMATION
  Report Type: Report from Study
  Country: US (occurrence: US)
  Receive Date: 20200319
  Receipt Date: 20200329
  Transmission Date: 20200409
  Serious: Yes (Other)
  Sender: FDA-Public Use
  Company Number: US-BEH-2020114440

PATIENT

DRUGS (1)
  1. HUMAN IMMUNOGLOBULIN (GENERIC) [Suspect]
     Active Substance: HUMAN IMMUNOGLOBULIN G
     Indication: PHELAN-MCDERMID SYNDROME
     Route: 042

REACTIONS (4)
  - Meningitis aseptic [Unknown]
  - Rash [Unknown]
  - No adverse event [Unknown]
  - Product use in unapproved indication [Unknown]
